FAERS Safety Report 9624206 (Version 3)
Quarter: 2013Q4

REPORT INFORMATION
  Report Type: Report from Study
  Country: CZ (occurrence: CZ)
  Receive Date: 20131015
  Receipt Date: 20131108
  Transmission Date: 20140711
  Serious: Yes (Death)
  Sender: FDA-Public Use
  Company Number: PHHY2013CZ115468

PATIENT
  Sex: Female

DRUGS (3)
  1. ACLASTA/ZOLEDRONATE [Suspect]
     Indication: OSTEOPOROSIS
     Dosage: UNK
     Route: 042
  2. ACLASTA/ZOLEDRONATE [Suspect]
     Dosage: UNK
     Route: 042
     Dates: start: 20100707
  3. ACLASTA/ZOLEDRONATE [Suspect]
     Dosage: UNK
     Route: 042
     Dates: start: 20110714

REACTIONS (2)
  - Cardiopulmonary failure [Fatal]
  - Lung neoplasm malignant [Fatal]
